FAERS Safety Report 8812508 (Version 2)
Quarter: 2012Q4

REPORT INFORMATION
  Report Type: 
  Country: JP (occurrence: JP)
  Receive Date: 20120927
  Receipt Date: 20121119
  Transmission Date: 20130627
  Serious: Yes (Other)
  Sender: FDA-Public Use
  Company Number: JP-PFIZER INC-2012235486

PATIENT
  Age: 70 Year
  Sex: Female

DRUGS (1)
  1. ZITHROMAC [Suspect]
     Indication: PERIODONTAL DISEASE
     Dosage: 500 mg (2 of the 250 mg tablets) daily
     Route: 048
     Dates: start: 20120919

REACTIONS (3)
  - Haemorrhage [Unknown]
  - Diarrhoea [Unknown]
  - Vomiting [Unknown]
